FAERS Safety Report 20404889 (Version 3)
Quarter: 2023Q1

REPORT INFORMATION
  Report Type: Report from Study
  Country: TH (occurrence: TH)
  Receive Date: 20220131
  Receipt Date: 20230309
  Transmission Date: 20230418
  Serious: Yes (Other)
  Sender: FDA-Public Use
  Company Number: TH-NOVARTISPH-NVSC2021TH103668

PATIENT
  Sex: Female

DRUGS (2)
  1. KISQALI [Suspect]
     Active Substance: RIBOCICLIB
     Indication: Breast cancer metastatic
     Dosage: UNK (TAKEN FOR 3 WEEKS THEN SKIPPED FOR 2 WEEKS)
     Route: 048
  2. KISQALI [Suspect]
     Active Substance: RIBOCICLIB
     Dosage: 2 DOSAGE FORM, QD (TAKING 21 DAYS, STOPPING 2 WEEKS)
     Route: 048
     Dates: start: 20220615

REACTIONS (5)
  - Dementia Alzheimer^s type [Unknown]
  - Weight decreased [Unknown]
  - White blood cell count abnormal [Unknown]
  - Underdose [Unknown]
  - Decreased appetite [Recovering/Resolving]
